FAERS Safety Report 5734311-4 (Version None)
Quarter: 2008Q2

REPORT INFORMATION
  Report Type: 
  Country: None (occurrence: None)
  Receive Date: 20080512
  Receipt Date: 20080508
  Transmission Date: 20081010
  Serious: Yes (Other)
  Sender: FDA-Public Use
  Company Number: SA-BRISTOL-MYERS SQUIBB COMPANY-14183560

PATIENT
  Age: 30 Year
  Sex: Male

DRUGS (1)
  1. GATIFLOXACIN [Suspect]
     Indication: PTERYGIUM
     Dosage: EVERY 2 HOUR FOR ENTIRE WEEK.
     Route: 047

REACTIONS (1)
  - CORNEAL PERFORATION [None]
